FAERS Safety Report 8157263-9 (Version None)
Quarter: 2012Q1

REPORT INFORMATION
  Report Type: 
  Country: None (occurrence: None)
  Receive Date: 20120222
  Receipt Date: 20120220
  Transmission Date: 20120608
  Serious: Yes (Other)
  Sender: FDA-Public Use
  Company Number: US-AMGEN-USASP2011020281

PATIENT
  Age: 49 Year
  Sex: Female
  Weight: 88.889 kg

DRUGS (8)
  1. TAXOL [Concomitant]
     Dosage: UNK UNK, QWK
     Dates: start: 20110408, end: 20110624
  2. PEPCID [Concomitant]
  3. ATIVAN [Concomitant]
     Dosage: 0.5 MG, UNK
  4. TYLENOL (CAPLET) [Concomitant]
     Dosage: UNK
     Dates: start: 20110408, end: 20110624
  5. PROCHLORPERAZINE MALEATE [Concomitant]
     Dosage: 10 MG, UNK
  6. BENADRYL [Concomitant]
     Dosage: UNK
     Dates: start: 20110408, end: 20110624
  7. PERCOCET [Concomitant]
  8. XGEVA [Suspect]
     Indication: METASTASES TO BONE
     Dosage: 120 MG, ONE TIME DOSE
     Route: 042
     Dates: start: 20110415, end: 20110415

REACTIONS (2)
  - WRONG DRUG ADMINISTERED [None]
  - INCORRECT ROUTE OF DRUG ADMINISTRATION [None]
